FAERS Safety Report 7206164-9 (Version None)
Quarter: 2010Q4

REPORT INFORMATION
  Report Type: 
  Country: None (occurrence: None)
  Receive Date: 20101221
  Receipt Date: 20101207
  Transmission Date: 20110411
  Serious: Yes (Hospitalization)
  Sender: FDA-Public Use
  Company Number: 2010005336

PATIENT
  Age: 69 Year
  Sex: Male
  Weight: 88.2 kg

DRUGS (2)
  1. ERLOTINIB (ERLOTINIB) (TABLET) (ERLOTINIB) [Suspect]
     Indication: BILE DUCT CANCER
     Dosage: 100 MG, QD, ORAL
     Route: 048
     Dates: start: 20101018, end: 20101025
  2. SORAFENIB [Suspect]
     Indication: BILE DUCT CANCER
     Dosage: 400 MG, BID, ORAL
     Route: 048
     Dates: start: 20101018, end: 20101025

REACTIONS (9)
  - ASCITES [None]
  - BLOOD CULTURE POSITIVE [None]
  - CLOSTRIDIUM TEST POSITIVE [None]
  - HYPOALBUMINAEMIA [None]
  - KLEBSIELLA TEST POSITIVE [None]
  - LIVER ABSCESS [None]
  - PLEURAL EFFUSION [None]
  - SEPSIS [None]
  - SPLENOMEGALY [None]
